FAERS Safety Report 15391019 (Version 2)
Quarter: 2018Q4

REPORT INFORMATION
  Report Type: Report from Study
  Country: US (occurrence: US)
  Receive Date: 20180917
  Receipt Date: 20181105
  Transmission Date: 20190204
  Serious: Yes (Death, Hospitalization, Other)
  Sender: FDA-Public Use
  Company Number: US-BRISTOL-MYERS SQUIBB COMPANY-BMS-2018-085516

PATIENT
  Age: 78 Year
  Sex: Female
  Weight: 74.2 kg

DRUGS (2)
  1. NIVOLUMAB [Suspect]
     Active Substance: NIVOLUMAB
     Indication: OVARIAN EPITHELIAL CANCER
     Dosage: 3 MG/KG, Q3WK
     Route: 042
     Dates: start: 20170630
  2. IPILIMUMAB [Suspect]
     Active Substance: IPILIMUMAB
     Indication: OVARIAN EPITHELIAL CANCER
     Dosage: 1 MG/KG, Q3WK
     Route: 042
     Dates: start: 20170630

REACTIONS (16)
  - Sepsis [Unknown]
  - Lethargy [Unknown]
  - Decreased appetite [Unknown]
  - Fracture [Unknown]
  - Confusional state [Unknown]
  - Pericardial effusion [Unknown]
  - Bacteraemia [Unknown]
  - Hypokalaemia [Unknown]
  - Hypotension [Unknown]
  - Anaemia [Unknown]
  - Colonic fistula [Unknown]
  - Fall [Unknown]
  - Hyponatraemia [Unknown]
  - Diverticular perforation [Fatal]
  - Lymphocyte count decreased [Unknown]
  - Adrenal insufficiency [Unknown]

NARRATIVE: CASE EVENT DATE: 20180702
